FAERS Safety Report 8003334-7 (Version None)
Quarter: 2011Q4

REPORT INFORMATION
  Report Type: 
  Country: None (occurrence: None)
  Receive Date: 20111222
  Receipt Date: 20111219
  Transmission Date: 20120403
  Serious: Yes (Death, Hospitalization)
  Sender: FDA-Public Use
  Company Number: PHHY2011RS110706

PATIENT
  Age: 57 Year
  Sex: Male

DRUGS (2)
  1. DICLOFENAC SODIUM [Suspect]
  2. ASPIRIN [Suspect]

REACTIONS (14)
  - WOUND SECRETION [None]
  - PYREXIA [None]
  - WOUND COMPLICATION [None]
  - NECROTISING FASCIITIS [None]
  - HAEMORRHAGE [None]
  - FALL [None]
  - OEDEMA [None]
  - EXCORIATION [None]
  - MUSCLE SWELLING [None]
  - TACHYCARDIA [None]
  - MUSCLE NECROSIS [None]
  - CONTUSION [None]
  - INJURY [None]
  - HYPOTENSION [None]
